FAERS Safety Report 7744806-X (Version None)
Quarter: 2011Q3

REPORT INFORMATION
  Report Type: 
  Country: None (occurrence: None)
  Receive Date: 20110912
  Receipt Date: 20110912
  Transmission Date: 20111222
  Serious: Yes (Other)
  Sender: FDA-Public Use
  Company Number: None

PATIENT
  Age: 48 Year
  Sex: Female
  Weight: 77 kg

DRUGS (1)
  1. FERAHEME [Suspect]
     Indication: ANAEMIA
     Dosage: 17CC
     Dates: start: 20110909, end: 20110909

REACTIONS (4)
  - MALAISE [None]
  - PALPITATIONS [None]
  - LOSS OF CONSCIOUSNESS [None]
  - DYSPNOEA [None]
